FAERS Safety Report 6897872-8 (Version None)
Quarter: 2010Q3

REPORT INFORMATION
  Report Type: 
  Country: None (occurrence: None)
  Receive Date: 20100802
  Receipt Date: 20070810
  Transmission Date: 20110219
  Serious: No
  Sender: FDA-Public Use
  Company Number: US-PFIZER INC-2007031737

PATIENT
  Sex: Male
  Weight: 84.1 kg

DRUGS (5)
  1. LYRICA [Suspect]
     Indication: NEUROPATHY PERIPHERAL
     Dates: start: 20070414
  2. DRUG, UNSPECIFIED [Suspect]
  3. ATIVAN [Concomitant]
  4. ZYPREXA [Concomitant]
  5. ALBUTEROL [Concomitant]

REACTIONS (8)
  - ANXIETY [None]
  - DIZZINESS [None]
  - DRUG INEFFECTIVE [None]
  - EUPHORIC MOOD [None]
  - FEELING ABNORMAL [None]
  - SENSORY LOSS [None]
  - THERAPEUTIC RESPONSE UNEXPECTED [None]
  - TREMOR [None]
